FAERS Safety Report 9005485 (Version 1)
Quarter: 2013Q1

REPORT INFORMATION
  Report Type: Spontaneous
  Country: GB (occurrence: GB)
  Receive Date: 20130109
  Receipt Date: 20130109
  Transmission Date: 20140127
  Serious: Yes (Other)
  Sender: FDA-Public Use
  Company Number: GB-MYLANLABS-2013S1000188

PATIENT
  Age: 54 Year
  Sex: Female

DRUGS (2)
  1. LANSOPRAZOLE [Suspect]
     Indication: REFLUX GASTRITIS
  2. VESICARE [Suspect]
     Indication: PRODUCT USED FOR UNKNOWN INDICATION
     Dates: start: 20121113

REACTIONS (5)
  - Circulatory collapse [Unknown]
  - Disorientation [Unknown]
  - Dizziness [Unknown]
  - Drug interaction [Unknown]
  - Malaise [Unknown]
